FAERS Safety Report 8171013-1 (Version None)
Quarter: 2012Q1

REPORT INFORMATION
  Report Type: 
  Country: None (occurrence: None)
  Receive Date: 20120113
  Receipt Date: 20110928
  Transmission Date: 20120608
  Serious: No
  Sender: FDA-Public Use
  Company Number: 2011S1000078

PATIENT
  Age: 34 Year
  Sex: Male
  Weight: 67.1324 kg

DRUGS (10)
  1. SOLU-CORTEF [Concomitant]
  2. OMEPRAZOLE [Concomitant]
  3. KRYSTEXXA [Suspect]
     Indication: GOUTY TOPHUS
     Dosage: 8 MG;X1;IV
     Route: 042
     Dates: start: 20110830, end: 20110830
  4. KRYSTEXXA [Suspect]
     Indication: GOUTY TOPHUS
     Dosage: 8 MG;X1;IV
     Route: 042
     Dates: start: 20110915, end: 20110915
  5. KRYSTEXXA [Suspect]
     Indication: GOUTY TOPHUS
     Dosage: 8 MG;X1;IV
     Route: 042
     Dates: start: 20110815, end: 20110815
  6. ULORIC [Concomitant]
  7. NAPROXEN [Concomitant]
  8. BENADRYL /00945501/ [Concomitant]
  9. PREDNISONE TAB [Concomitant]
  10. COLCHICINE [Concomitant]

REACTIONS (1)
  - THERAPEUTIC RESPONSE DECREASED [None]
